FAERS Safety Report 24810543 (Version 1)
Quarter: 2025Q1

REPORT INFORMATION
  Report Type: Spontaneous
  Country: GB (occurrence: GB)
  Receive Date: 20250106
  Receipt Date: 20250106
  Transmission Date: 20250409
  Serious: Yes (Other)
  Sender: PFIZER
  Company Number: None

PATIENT
  Age: 51 Year
  Sex: Male

DRUGS (2)
  1. TIGECYCLINE [Interacting]
     Active Substance: TIGECYCLINE
     Indication: Anti-infective therapy
     Route: 042
  2. TACROLIMUS [Interacting]
     Active Substance: TACROLIMUS

REACTIONS (2)
  - Toxicity to various agents [Recovered/Resolved]
  - Drug interaction [Unknown]
